FAERS Safety Report 8859029 (Version 2)
Quarter: 2012Q4

REPORT INFORMATION
  Report Type: 
  Country: AU (occurrence: AU)
  Receive Date: 20121024
  Receipt Date: 20121031
  Transmission Date: 20130627
  Serious: Yes (Other)
  Sender: FDA-Public Use
  Company Number: AU-ABBOTT-12P-008-0995906-00

PATIENT
  Sex: Male

DRUGS (2)
  1. KALETRA TABLETS 100/25 [Suspect]
     Indication: HIV INFECTION
     Dates: start: 2004, end: 201111
  2. TRUVADA [Concomitant]
     Indication: PRODUCT USED FOR UNKNOWN INDICATION

REACTIONS (2)
  - Blood creatine phosphokinase increased [Recovered/Resolved]
  - Renal failure [Unknown]
